FAERS Safety Report 4392936-5 (Version None)
Quarter: 2004Q3

REPORT INFORMATION
  Report Type: 
  Country: None (occurrence: None)
  Receive Date: 20040702
  Receipt Date: 20040622
  Transmission Date: 20050211
  Serious: Yes (Hospitalization)
  Sender: FDA-Public Use
  Company Number: 2004AP02667

PATIENT
  Age: 76 Year
  Sex: Male

DRUGS (6)
  1. IRESSA [Suspect]
     Indication: NON-SMALL CELL LUNG CANCER
     Dosage: 250 MG DAILY PO
     Route: 048
     Dates: start: 20040308, end: 20040422
  2. VINORELBINE TARTRATE [Concomitant]
  3. CARBOPLATIN [Concomitant]
  4. PACLITAXEL [Concomitant]
  5. GEMCITABINE [Concomitant]
  6. RADIOTHERAPY [Concomitant]

REACTIONS (7)
  - COUGH [None]
  - DYSPNOEA EXERTIONAL [None]
  - EPISTAXIS [None]
  - HYPOXIA [None]
  - PHARYNGOLARYNGEAL PAIN [None]
  - PULMONARY FIBROSIS [None]
  - RHINALGIA [None]
